FAERS Safety Report 10155257 (Version 2)
Quarter: 2014Q2

REPORT INFORMATION
  Report Type: Report from Study
  Country: BR (occurrence: BR)
  Receive Date: 20140506
  Receipt Date: 20140619
  Transmission Date: 20141212
  Serious: Yes (Other)
  Sender: FDA-Public Use
  Company Number: PHHY2014BR053142

PATIENT
  Sex: Female
  Weight: 63 kg

DRUGS (3)
  1. EXELON [Suspect]
     Indication: MEMORY IMPAIRMENT
     Dosage: 1 DF, UNK
     Route: 048
  2. LIVIAL [Concomitant]
     Indication: HORMONE THERAPY
     Dosage: UNK UKN, UNK
  3. PERIDAL//DOMPERIDONE [Concomitant]
     Indication: GASTRIC DISORDER
     Dosage: UNK UKN, UNK (ONLY WHEN THE PATIENT WAS UNWELL)

REACTIONS (14)
  - Syncope [Recovering/Resolving]
  - Body temperature decreased [Recovering/Resolving]
  - Nervous system disorder [Recovering/Resolving]
  - Visual impairment [Recovering/Resolving]
  - Vision blurred [Recovering/Resolving]
  - Gastritis [Recovering/Resolving]
  - Gallbladder disorder [Recovering/Resolving]
  - Chills [Unknown]
  - Nausea [Recovering/Resolving]
  - Vomiting [Recovering/Resolving]
  - Dizziness [Recovering/Resolving]
  - Tremor [Recovering/Resolving]
  - Diarrhoea [Unknown]
  - Malaise [Unknown]
